FAERS Safety Report 7513128-4 (Version None)
Quarter: 2011Q2

REPORT INFORMATION
  Report Type: 
  Country: None (occurrence: None)
  Receive Date: 20110531
  Receipt Date: 20110524
  Transmission Date: 20111010
  Serious: Yes (Hospitalization)
  Sender: FDA-Public Use
  Company Number: DE-SANOFI-AVENTIS-2011SA033201

PATIENT

DRUGS (1)
  1. MULTAQ [Suspect]
     Route: 048
     Dates: start: 20110501, end: 20110501

REACTIONS (5)
  - NAUSEA [None]
  - BLOOD CREATININE INCREASED [None]
  - BLOOD SODIUM DECREASED [None]
  - RENAL IMPAIRMENT [None]
  - DIZZINESS [None]
